FAERS Safety Report 11857774 (Version 1)
Quarter: 2015Q4

REPORT INFORMATION
  Report Type: Spontaneous
  Country: US (occurrence: None)
  Receive Date: 20151221
  Receipt Date: 20151221
  Transmission Date: 20160305
  Serious: No
  Sender: FDA-Public Use
  Company Number: None

PATIENT
  Age: 19 Year
  Sex: Male

DRUGS (2)
  1. HALOPERIDOL 5 MG/ML FRESENIUS KABI USA [Suspect]
     Active Substance: HALOPERIDOL
     Indication: PSYCHOTIC DISORDER
     Dosage: 5 MG Q 6 HR PRN IM
     Route: 030
     Dates: start: 20151007
  2. HALOPERIDOL 5 MG/ML FRESENIUS KABI USA [Suspect]
     Active Substance: HALOPERIDOL
     Indication: AGITATION
     Dosage: 5 MG Q 6 HR PRN IM
     Route: 030
     Dates: start: 20151007

REACTIONS (2)
  - Catatonia [None]
  - Body temperature increased [None]

NARRATIVE: CASE EVENT DATE: 20151203
